FAERS Safety Report 6263073-X (Version None)
Quarter: 2009Q3

REPORT INFORMATION
  Report Type: 
  Country: None (occurrence: None)
  Receive Date: 20090710
  Receipt Date: 20090629
  Transmission Date: 20100115
  Serious: Yes (Hospitalization)
  Sender: FDA-Public Use
  Company Number: AR-PFIZER INC-2006073053

PATIENT
  Age: 46 Year

DRUGS (9)
  1. SUNITINIB MALATE [Suspect]
     Indication: RENAL CELL CARCINOMA
     Dosage: 50 MG, 4 WEEKS ON / 2 WEEKS OFF
     Route: 048
     Dates: start: 20060405
  2. ENALAPRIL [Concomitant]
     Indication: HYPERTENSION
     Route: 048
     Dates: start: 20060101
  3. DICLOFENAC [Concomitant]
     Route: 048
     Dates: start: 20051001
  4. METOCLOPRAMIDE [Concomitant]
     Route: 048
     Dates: start: 20051001
  5. RANITIDINE [Concomitant]
     Route: 048
     Dates: start: 20051001
  6. AMITRIPTYLINE HCL [Concomitant]
     Route: 048
     Dates: start: 20051001
  7. LACTULOSE [Concomitant]
     Route: 048
     Dates: start: 20051001
  8. DEXTROPROPOXYPHENE [Concomitant]
     Route: 048
     Dates: start: 20051001
  9. DIPYRONE [Concomitant]
     Route: 048
     Dates: start: 20051001

REACTIONS (3)
  - CONVULSION [None]
  - MASTOIDITIS [None]
  - OTITIS MEDIA [None]
